FAERS Safety Report 9383128 (Version 1)
Quarter: 2013Q3

REPORT INFORMATION
  Report Type: Spontaneous
  Country: DE (occurrence: DE)
  Receive Date: 20130704
  Receipt Date: 20130704
  Transmission Date: 20140515
  Serious: Yes (Other)
  Sender: FDA-Public Use
  Company Number: DE-ROCHE-1242301

PATIENT
  Sex: Female

DRUGS (6)
  1. RITUXIMAB [Suspect]
     Indication: B-CELL LYMPHOMA
     Dosage: 3 CYCLES
     Route: 065
     Dates: start: 201202, end: 201204
  2. RITUXIMAB [Suspect]
     Dosage: 3 CYCLES
     Route: 065
     Dates: start: 201205, end: 201207
  3. RITUXIMAB [Suspect]
     Dosage: MAINTAINANCE THERAPY
     Route: 065
     Dates: start: 201209
  4. RITUXIMAB [Suspect]
     Dosage: THIRD CYCLE OF MAINTENANCE THERAPY
     Route: 065
     Dates: start: 20130131
  5. BENDAMUSTINE [Suspect]
     Indication: B-CELL LYMPHOMA
     Dosage: 3 CYCLES
     Route: 065
     Dates: start: 201202, end: 201204
  6. BENDAMUSTINE [Suspect]
     Dosage: 3 CYCLES
     Route: 065
     Dates: start: 201205, end: 201207

REACTIONS (4)
  - Panniculitis [Not Recovered/Not Resolved]
  - Leukopenia [Not Recovered/Not Resolved]
  - Neutropenia [Unknown]
  - Fatigue [Unknown]
